FAERS Safety Report 13085583 (Version 1)
Quarter: 2017Q1

REPORT INFORMATION
  Report Type: Spontaneous
  Country: US (occurrence: US)
  Receive Date: 20170103
  Receipt Date: 20170103
  Transmission Date: 20170428
  Serious: Yes (Hospitalization, Disabling, Other)
  Sender: FDA-Public Use
  Company Number: None

PATIENT
  Age: 45 Year
  Sex: Female
  Weight: 83.7 kg

DRUGS (5)
  1. LEVAQUIN [Suspect]
     Active Substance: LEVOFLOXACIN
     Indication: GASTROENTERITIS
     Dosage: ?          QUANTITY:7 CAPSULE(S);?
     Route: 048
     Dates: start: 20160418, end: 20160426
  2. ETHICAL [Concomitant]
  3. FLUDROCORTISONE [Concomitant]
     Active Substance: FLUDROCORTISONE
  4. LEVOTHYROXINE. [Concomitant]
     Active Substance: LEVOTHYROXINE
  5. HYDROCORTISONE. [Concomitant]
     Active Substance: HYDROCORTISONE

REACTIONS (7)
  - Palpitations [None]
  - Therapy cessation [None]
  - Clostridium difficile infection [None]
  - Panic attack [None]
  - Adrenocortical insufficiency acute [None]
  - Delusion [None]
  - Abnormal behaviour [None]

NARRATIVE: CASE EVENT DATE: 20160422
